FAERS Safety Report 5022895-3 (Version None)
Quarter: 2006Q2

REPORT INFORMATION
  Report Type: 
  Country: None (occurrence: None)
  Receive Date: 20060426
  Receipt Date: 20060112
  Transmission Date: 20061013
  Serious: Yes (Other)
  Sender: FDA-Public Use
  Company Number: 2006008847

PATIENT
  Age: 83 Year
  Sex: Male
  Weight: 95.2554 kg

DRUGS (5)
  1. LYRICA [Suspect]
     Indication: NEUROPATHY
     Dosage: 75 MG (25 MG, 3 IN 1 D) ORAL
     Route: 048
     Dates: start: 20051101, end: 20051101
  2. WARFARIN (WAWARFARIN) [Concomitant]
  3. LANOXIN [Concomitant]
  4. NORVASC [Concomitant]
  5. COZAAR [Concomitant]

REACTIONS (1)
  - VISION BLURRED [None]
